FAERS Safety Report 6830924-7 (Version None)
Quarter: 2010Q3

REPORT INFORMATION
  Report Type: 
  Country: None (occurrence: None)
  Receive Date: 20100712
  Receipt Date: 20100701
  Transmission Date: 20110219
  Serious: Yes (Other)
  Sender: FDA-Public Use
  Company Number: US-JNJFOC-20100702146

PATIENT
  Sex: Female
  Weight: 104.33 kg

DRUGS (5)
  1. DURAGESIC-100 [Suspect]
     Indication: PAIN
     Route: 062
  2. MS CONTIN [Suspect]
     Indication: PAIN
     Route: 048
  3. VICOPROFEN [Concomitant]
     Indication: BREAKTHROUGH PAIN
     Dosage: 7.5/200MG
     Route: 048
  4. ENALAPRIL MALEATE [Concomitant]
     Indication: HYPERTENSION
     Route: 048
  5. UNKNOWN MEDICATION [Concomitant]
     Indication: HYPERSENSITIVITY
     Dosage: 2 PUFFS PER DAY
     Route: 045

REACTIONS (3)
  - COLITIS ULCERATIVE [None]
  - LYMPHADENOPATHY [None]
  - PANCREATIC DUCT OBSTRUCTION [None]
